FAERS Safety Report 8493651-9 (Version None)
Quarter: 2012Q3

REPORT INFORMATION
  Report Type: 
  Country: None (occurrence: None)
  Receive Date: 20120706
  Receipt Date: 20120621
  Transmission Date: 20120928
  Serious: Yes (Other)
  Sender: FDA-Public Use
  Company Number: US-BAXTER-2012BAX009441

PATIENT
  Sex: Female
  Weight: 84.1 kg

DRUGS (26)
  1. SINGULAIR [Concomitant]
     Route: 048
  2. ALBUTEROL [Concomitant]
  3. INDOMETHACIN [Concomitant]
     Indication: ANKYLOSING SPONDYLITIS
     Route: 048
  4. TRAMADOL HCL [Concomitant]
     Route: 048
  5. METHYLPREDNISOLONE [Concomitant]
     Indication: INFECTION PROPHYLAXIS
     Route: 048
  6. SKELAXIN [Concomitant]
     Route: 048
  7. ADVAIR DISKUS 100/50 [Concomitant]
     Indication: ASTHMA
     Dosage: 250/50
  8. GAMMAGARD LIQUID [Suspect]
     Route: 042
     Dates: start: 20120619, end: 20120619
  9. CHLORDIAZEPOXIDE HCL W/ CLIDINIUM BROMIDE [Concomitant]
     Route: 048
  10. ABILIFY [Concomitant]
     Route: 048
  11. DEXILANT [Concomitant]
     Route: 048
  12. METHOTREXATE [Concomitant]
  13. REQUIP [Concomitant]
     Route: 048
  14. PROAIR HFA [Concomitant]
  15. CYMBALTA [Concomitant]
     Route: 048
  16. VITAMIN D [Concomitant]
     Dosage: 4000 UNITS
     Route: 048
  17. REMICADE [Concomitant]
     Indication: ANKYLOSING SPONDYLITIS
     Route: 065
  18. OXYGEN [Concomitant]
  19. FLONASE [Concomitant]
     Route: 045
  20. CYANOCOBALAMIN [Concomitant]
     Dosage: 1 TAB
     Route: 048
  21. LYRICA [Concomitant]
     Route: 048
  22. ZEBUTAL [Concomitant]
     Indication: MIGRAINE
     Route: 065
  23. PREMPRO [Concomitant]
     Dosage: 0.3MG/1.5MG
     Route: 048
  24. FOLIC ACID [Concomitant]
     Route: 048
  25. TRAMADOL HCL [Concomitant]
     Route: 048
  26. FLECTOR [Concomitant]

REACTIONS (3)
  - UVEITIS [None]
  - IRITIS [None]
  - HEADACHE [None]
